FAERS Safety Report 18137307 (Version 2)
Quarter: 2020Q3

REPORT INFORMATION
  Report Type: Report from Study
  Country: US (occurrence: US)
  Receive Date: 20200811
  Receipt Date: 20200912
  Transmission Date: 20201103
  Serious: Yes (Hospitalization, Other)
  Sender: FDA-Public Use
  Company Number: US-ROCHE-2541673

PATIENT
  Age: 71 Year
  Sex: Male
  Weight: 79.8 kg

DRUGS (3)
  1. CISPLATIN. [Suspect]
     Active Substance: CISPLATIN
     Indication: MESOTHELIOMA
     Route: 042
     Dates: start: 20200103
  2. PEMETREXED. [Suspect]
     Active Substance: PEMETREXED
     Indication: MESOTHELIOMA
     Route: 042
     Dates: start: 20200103
  3. ATEZOLIZUMAB. [Suspect]
     Active Substance: ATEZOLIZUMAB
     Indication: MESOTHELIOMA
     Route: 041
     Dates: start: 20200103

REACTIONS (2)
  - Neutrophil count decreased [Recovered/Resolved with Sequelae]
  - Gastritis [Recovered/Resolved]

NARRATIVE: CASE EVENT DATE: 20200109
